FAERS Safety Report 9096025 (Version 3)
Quarter: 2013Q3

REPORT INFORMATION
  Report Type: Spontaneous
  Country: TR (occurrence: TR)
  Receive Date: 20130207
  Receipt Date: 20130925
  Transmission Date: 20140515
  Serious: Yes (Other)
  Sender: FDA-Public Use
  Company Number: TR-PFIZER INC-2013047185

PATIENT
  Age: 55 Year
  Sex: Male

DRUGS (6)
  1. FLUOROURACIL [Suspect]
     Indication: NON-SMALL CELL LUNG CANCER METASTATIC
     Dosage: 750 MG/M2, CYCLIC, DAY 1-5
  2. FLUOROURACIL [Suspect]
     Indication: NASOPHARYNGEAL CANCER
  3. DOCETAXEL [Suspect]
     Indication: NON-SMALL CELL LUNG CANCER METASTATIC
     Dosage: 75 MG/M2, CYCLIC, DAY 1
  4. DOCETAXEL [Suspect]
     Indication: NASOPHARYNGEAL CANCER
  5. CISPLATIN [Suspect]
     Indication: NON-SMALL CELL LUNG CANCER METASTATIC
     Dosage: 75 MG/M2, CYCLIC, DAY 1
  6. CISPLATIN [Suspect]
     Indication: NASOPHARYNGEAL CANCER

REACTIONS (1)
  - Pericarditis [Recovered/Resolved]
